FAERS Safety Report 18063873 (Version 2)
Quarter: 2020Q3

REPORT INFORMATION
  Report Type: Spontaneous
  Country: IT (occurrence: IT)
  Receive Date: 20200724
  Receipt Date: 20200728
  Transmission Date: 20201103
  Serious: Yes (Death)
  Sender: FDA-Public Use
  Company Number: IT-TEVA-2020-IT-1804678

PATIENT
  Age: 68 Year
  Sex: Male
  Weight: 55 kg

DRUGS (3)
  1. CISPLATINO TEVA ITALIA 1 MG/ML CONCENTRATO PER SOLUZIONE PER INFUSIONE [Suspect]
     Active Substance: CISPLATIN
     Route: 042
     Dates: start: 20200526, end: 20200526
  2. KEYTRUDA [Suspect]
     Active Substance: PEMBROLIZUMAB
     Route: 042
     Dates: start: 20200526, end: 20200526
  3. ALIMTA [Suspect]
     Active Substance: PEMETREXED DISODIUM
     Route: 042
     Dates: start: 20200526, end: 20200526

REACTIONS (1)
  - Pancytopenia [Fatal]

NARRATIVE: CASE EVENT DATE: 20200615
